FAERS Safety Report 5644729-6 (Version None)
Quarter: 2008Q1

REPORT INFORMATION
  Report Type: 
  Country: None (occurrence: None)
  Receive Date: 20080229
  Receipt Date: 20070712
  Transmission Date: 20080703
  Serious: No
  Sender: FDA-Public Use
  Company Number: A0660334A

PATIENT
  Age: 31 Year
  Sex: Female
  Weight: 59.5 kg

DRUGS (2)
  1. VALTREX [Suspect]
     Indication: GENITAL HERPES
     Dosage: 1G PER DAY
     Route: 048
     Dates: start: 20070409, end: 20070622
  2. NO CONCURRENT MEDICATIONS [Concomitant]

REACTIONS (3)
  - ALOPECIA [None]
  - DRUG INEFFECTIVE [None]
  - HERPES VIRUS INFECTION [None]
